FAERS Safety Report 16417353 (Version 8)
Quarter: 2022Q4

REPORT INFORMATION
  Report Type: Report from Study
  Country: DE (occurrence: DE)
  Receive Date: 20190611
  Receipt Date: 20221207
  Transmission Date: 20230113
  Serious: Yes (Hospitalization, Other)
  Sender: FDA-Public Use
  Company Number: DE-JNJFOC-20190610744

PATIENT
  Age: 5 Decade
  Sex: Male

DRUGS (6)
  1. SIMPONI [Suspect]
     Active Substance: GOLIMUMAB
     Indication: Axial spondyloarthritis
     Route: 058
     Dates: start: 20170830
  2. SIMPONI [Suspect]
     Active Substance: GOLIMUMAB
     Indication: Psoriatic arthropathy
     Route: 058
     Dates: start: 20191115, end: 20200215
  3. SIMPONI [Suspect]
     Active Substance: GOLIMUMAB
     Route: 058
     Dates: start: 20200515
  4. SIMPONI [Suspect]
     Active Substance: GOLIMUMAB
     Route: 058
     Dates: start: 20210505
  5. ETORICOXIB [Concomitant]
     Active Substance: ETORICOXIB
     Route: 065
     Dates: start: 20120101, end: 20170901
  6. CELECOXIB [Concomitant]
     Active Substance: CELECOXIB
     Route: 065
     Dates: start: 20190731, end: 20190731

REACTIONS (11)
  - Basal cell carcinoma [Recovered/Resolved]
  - Tendon rupture [Recovered/Resolved]
  - Wisdom teeth removal [Unknown]
  - Urinary tract infection [Unknown]
  - Pain [Unknown]
  - Influenza like illness [Unknown]
  - Tooth infection [Unknown]
  - Arthropod bite [Unknown]
  - Spinal pain [Unknown]
  - Off label use [Unknown]
  - Product use issue [Unknown]

NARRATIVE: CASE EVENT DATE: 20170830
